FAERS Safety Report 8983651 (Version 2)
Quarter: 2013Q2

REPORT INFORMATION
  Report Type: Spontaneous
  Country: US (occurrence: US)
  Receive Date: 20121224
  Receipt Date: 20130531
  Transmission Date: 20140414
  Serious: No
  Sender: FDA-Public Use
  Company Number: US-BIOGENIDEC-2012BI062810

PATIENT
  Sex: Female

DRUGS (1)
  1. TYSABRI [Suspect]
     Indication: MULTIPLE SCLEROSIS
     Route: 042
     Dates: start: 20091006

REACTIONS (5)
  - Hypoaesthesia oral [Unknown]
  - Tremor [Unknown]
  - Dysarthria [Unknown]
  - Speech disorder [Unknown]
  - Stress [Unknown]
